FAERS Safety Report 24564884 (Version 1)
Quarter: 2024Q4

REPORT INFORMATION
  Report Type: Spontaneous
  Country: US (occurrence: US)
  Receive Date: 20241030
  Receipt Date: 20241030
  Transmission Date: 20250115
  Serious: Yes (Other)
  Sender: ASCEND THERAPEUTICS US, LLC
  Company Number: US-Ascend Therapeutics US, LLC-2164070

PATIENT
  Age: 33 Year
  Sex: Female

DRUGS (2)
  1. ANDROGEL [Suspect]
     Active Substance: TESTOSTERONE
     Dates: start: 2009
  2. TESTOSTERONE [Suspect]
     Active Substance: TESTOSTERONE
     Dates: start: 2009

REACTIONS (2)
  - Cerebrospinal fluid leakage [Recovered/Resolved]
  - Idiopathic intracranial hypertension [Unknown]
